FAERS Safety Report 4358284-4 (Version None)
Quarter: 2004Q2

REPORT INFORMATION
  Report Type: 
  Country: None (occurrence: None)
  Receive Date: 20040511
  Receipt Date: 20040429
  Transmission Date: 20050107
  Serious: Yes (Other)
  Sender: FDA-Public Use
  Company Number: 2004029357

PATIENT
  Age: 61 Year
  Sex: Male
  Weight: 90.7194 kg

DRUGS (5)
  1. LIPITOR [Suspect]
     Indication: BLOOD TRIGLYCERIDES INCREASED
     Dosage: 10 MG (1 IN 1 D), ORAL
     Route: 048
     Dates: start: 20000307, end: 20030129
  2. PREDNISONE [Suspect]
     Indication: HEPATOCELLULAR DAMAGE
     Dosage: 40 MG (1 IN 1 D), ORAL
     Route: 048
     Dates: start: 20031126
  3. ALL OTHER THERAPEUTIC PRODUCTS [Concomitant]
  4. NADOLOL [Concomitant]
  5. WARFARIN SODIUM [Concomitant]

REACTIONS (5)
  - ALANINE AMINOTRANSFERASE INCREASED [None]
  - HEPATOCELLULAR DAMAGE [None]
  - HEPATOSPLENOMEGALY [None]
  - MYALGIA [None]
  - WEIGHT INCREASED [None]
